FAERS Safety Report 6858604-2 (Version None)
Quarter: 2010Q3

REPORT INFORMATION
  Report Type: 
  Country: None (occurrence: None)
  Receive Date: 20100719
  Receipt Date: 20080408
  Transmission Date: 20110219
  Serious: Yes (Hospitalization, Other)
  Sender: FDA-Public Use
  Company Number: US-PFIZER INC-2008013007

PATIENT
  Sex: Female
  Weight: 60 kg

DRUGS (3)
  1. CHANTIX [Suspect]
     Indication: SMOKING CESSATION THERAPY
     Dates: start: 20080101, end: 20080205
  2. PHENOBARBITAL [Suspect]
  3. NORVASC [Concomitant]
     Indication: HYPERTENSION

REACTIONS (14)
  - ANGER [None]
  - CRYING [None]
  - EMOTIONAL DISORDER [None]
  - ERYTHEMA [None]
  - FLASHBACK [None]
  - IMPULSIVE BEHAVIOUR [None]
  - INSOMNIA [None]
  - OVERDOSE [None]
  - SCREAMING [None]
  - SENSATION OF BLOOD FLOW [None]
  - SUICIDAL IDEATION [None]
  - SUICIDE ATTEMPT [None]
  - THINKING ABNORMAL [None]
  - VISION BLURRED [None]
